FAERS Safety Report 6683235-7 (Version None)
Quarter: 2010Q2

REPORT INFORMATION
  Report Type: 
  Country: None (occurrence: None)
  Receive Date: 20100415
  Receipt Date: 20100405
  Transmission Date: 20101027
  Serious: Yes (Other)
  Sender: FDA-Public Use
  Company Number: US-JNJFOC-20091206169

PATIENT
  Sex: Female

DRUGS (1)
  1. LEVAQUIN [Suspect]
     Indication: BRONCHITIS CHRONIC
     Route: 048

REACTIONS (4)
  - CARPAL TUNNEL SYNDROME [None]
  - ROTATOR CUFF SYNDROME [None]
  - TENDON RUPTURE [None]
  - TRIGGER FINGER [None]
